FAERS Safety Report 7577200-5 (Version None)
Quarter: 2011Q2

REPORT INFORMATION
  Report Type: 
  Country: None (occurrence: None)
  Receive Date: 20110628
  Receipt Date: 20110526
  Transmission Date: 20111010
  Serious: Yes (Other)
  Sender: FDA-Public Use
  Company Number: US-BAYER-201038228NA

PATIENT
  Age: 35 Year
  Sex: Female
  Weight: 104 kg

DRUGS (30)
  1. YAZ [Suspect]
     Indication: ACNE
     Dosage: UNK
     Dates: start: 20020101, end: 20060101
  2. HUMALOG [Concomitant]
     Indication: DIABETES MELLITUS
     Dosage: UNK
     Dates: start: 19940101
  3. MULTIVITAMINS AND IRON [Concomitant]
     Indication: BLOOD IRON DECREASED
     Dosage: UNK
     Dates: start: 20020101
  4. MAX OXIDE [Concomitant]
     Indication: BLOOD MAGNESIUM DECREASED
     Dosage: 400 MG, UNK
     Dates: start: 20090101
  5. ASPIRIN [Concomitant]
     Indication: UNEVALUABLE EVENT
     Dosage: 81 MG, UNK
     Dates: start: 20070101
  6. NIFEDIPINE [Concomitant]
  7. CAPTOPRIL [Concomitant]
  8. VITAMIN D [Concomitant]
     Indication: VITAMIN D DECREASED
     Dosage: UNK
     Dates: start: 20020101
  9. XENICAL [Concomitant]
     Indication: GASTROOESOPHAGEAL REFLUX DISEASE
     Dosage: 120 MG, UNK
     Dates: start: 20030101
  10. STOOL SOFTENER [Concomitant]
     Indication: CONSTIPATION
     Dosage: UNK
     Dates: start: 20100101
  11. FIBER [Concomitant]
     Indication: CONSTIPATION
     Dosage: UNK
     Dates: start: 20100101
  12. PHENTERMINE [Concomitant]
  13. AVAPRO [Concomitant]
     Indication: HYPERTENSION
     Dosage: 150 MG, UNK
     Dates: start: 19950101
  14. KLOR-CON M10 [Concomitant]
     Indication: BLOOD POTASSIUM DECREASED
     Dosage: UNK
     Dates: start: 20090101
  15. ZOLOFT [Concomitant]
     Indication: DEPRESSION
     Dosage: 100 MG, UNK
     Dates: start: 20020101
  16. MONOPRIL [Concomitant]
  17. BACLOFEN [Concomitant]
     Indication: MYALGIA
     Dosage: 20 MG, UNK
     Dates: start: 20070101, end: 20090101
  18. PREDNISONE [Concomitant]
     Dosage: 10 MG, UNK
     Dates: start: 20070101
  19. NOVA BE D. [Concomitant]
     Indication: POLYCYSTIC OVARIES
     Dosage: 35 MG, UNK
     Dates: start: 19970101
  20. COREG [Concomitant]
     Indication: TACHYCARDIA
     Dosage: 125 MG, UNK
     Dates: start: 20070101
  21. DROSPIRENONE AND ETHINYL ESTRADIOL [Suspect]
     Indication: ACNE
     Dosage: UNK
     Dates: start: 20020101, end: 20060101
  22. ACTOS [Concomitant]
     Indication: DIABETES MELLITUS
     Dosage: 45 MG, UNK
     Dates: start: 19940101
  23. LEVEMIR [Concomitant]
     Indication: DIABETES MELLITUS
     Dosage: UNK
     Dates: start: 19940101
  24. ALLEGRA [Concomitant]
     Indication: MULTIPLE ALLERGIES
     Dosage: 180 MG, UNK
     Dates: start: 20010101
  25. OMEPRAZOLE [Concomitant]
     Indication: GASTROOESOPHAGEAL REFLUX DISEASE
     Dosage: 40 MG, UNK
     Dates: start: 20020101
  26. ANTIMIGRAINE PREPARATIONS [Concomitant]
     Indication: HEADACHE
     Dosage: UNK
     Dates: start: 20100101
  27. XALATAN [Concomitant]
  28. YASMIN [Suspect]
     Indication: ACNE
     Dosage: UNK
     Dates: start: 20051031, end: 20080809
  29. TYLENOL REGULAR [Concomitant]
     Indication: ARTHRITIS
  30. ALLOPURINOL [Concomitant]
     Indication: GOUT
     Dosage: UNK
     Dates: start: 20090101

REACTIONS (4)
  - CHOLECYSTITIS [None]
  - RETINAL VEIN OCCLUSION [None]
  - RETINAL VASCULAR THROMBOSIS [None]
  - CHOLELITHIASIS [None]
